FAERS Safety Report 9995375 (Version 2)
Quarter: 2014Q2

REPORT INFORMATION
  Report Type: Spontaneous
  Country: US (occurrence: US)
  Receive Date: 20140311
  Receipt Date: 20140520
  Transmission Date: 20141212
  Serious: No
  Sender: FDA-Public Use
  Company Number: US-BAYER-2014-036286

PATIENT
  Age: 19 Year
  Sex: Female
  Weight: 67.57 kg

DRUGS (1)
  1. MIRENA [Suspect]
     Indication: CONTRACEPTION
     Dosage: 20 MCG/24HR, CONT
     Route: 015
     Dates: start: 20130422, end: 20140225

REACTIONS (3)
  - Device expulsion [Recovered/Resolved]
  - Unintentional medical device removal [Recovered/Resolved]
  - Pelvic pain [None]
